FAERS Safety Report 18717152 (Version 2)
Quarter: 2021Q1

REPORT INFORMATION
  Report Type: Spontaneous
  Country: US (occurrence: US)
  Receive Date: 20210108
  Receipt Date: 20210115
  Transmission Date: 20210419
  Serious: Yes (Other)
  Sender: FDA-Public Use
  Company Number: US-PFIZER INC-2021005023

PATIENT
  Age: 55 Year
  Sex: Female

DRUGS (3)
  1. CISPLATIN. [Concomitant]
     Active Substance: CISPLATIN
     Indication: ADENOSQUAMOUS CARCINOMA OF THE CERVIX
     Dosage: UNK
  2. BEVACIZUMAB. [Suspect]
     Active Substance: BEVACIZUMAB
     Indication: ADENOSQUAMOUS CARCINOMA OF THE CERVIX
     Dosage: UNK
  3. PACLITAXEL. [Concomitant]
     Active Substance: PACLITAXEL
     Indication: ADENOSQUAMOUS CARCINOMA OF THE CERVIX
     Dosage: UNK

REACTIONS (1)
  - Laryngeal necrosis [Recovering/Resolving]
